FAERS Safety Report 20310772 (Version 1)
Quarter: 2022Q1

REPORT INFORMATION
  Report Type: Spontaneous
  Country: US (occurrence: US)
  Receive Date: 20220107
  Receipt Date: 20220107
  Transmission Date: 20220423
  Serious: Yes (Other)
  Sender: FDA-Public Use
  Company Number: US-PFIZER INC-202101864283

PATIENT
  Age: 90 Year
  Sex: Male

DRUGS (1)
  1. BOSULIF [Suspect]
     Active Substance: BOSUTINIB MONOHYDRATE
     Dosage: 200 MG, DAILY(200 MG DAILY ORAL)
     Route: 048
     Dates: start: 20210625

REACTIONS (1)
  - Sinus disorder [Recovering/Resolving]

NARRATIVE: CASE EVENT DATE: 20211201
